FAERS Safety Report 9014559 (Version 1)
Quarter: 2013Q1

REPORT INFORMATION
  Report Type: Spontaneous
  Country: US (occurrence: US)
  Receive Date: 20130115
  Receipt Date: 20130115
  Transmission Date: 20140127
  Serious: Yes (Death, Other)
  Sender: FDA-Public Use
  Company Number: US-009507513-1301USA002593

PATIENT
  Age: 54 Year
  Sex: Female

DRUGS (9)
  1. MONTELUKAST SODIUM [Suspect]
     Route: 048
  2. FENOFIBRATE [Suspect]
     Route: 048
  3. DULOXETINE HYDROCHLORIDE [Suspect]
     Route: 048
  4. FLURAZEPAM [Suspect]
     Route: 048
  5. ACETAMINOPHEN [Suspect]
     Route: 048
  6. DOXEPIN HYDROCHLORIDE [Suspect]
     Route: 048
  7. TRAZODONE HYDROCHLORIDE [Suspect]
     Route: 048
  8. FLUOXETINE [Suspect]
     Route: 048
  9. CITALOPRAM [Suspect]
     Route: 048

REACTIONS (3)
  - Suicide attempt [Fatal]
  - Respiratory arrest [Unknown]
  - Cardiac arrest [Unknown]
